FAERS Safety Report 10025061 (Version 1)
Quarter: 2014Q1

REPORT INFORMATION
  Report Type: Spontaneous
  Country: US (occurrence: US)
  Receive Date: 20140320
  Receipt Date: 20140320
  Transmission Date: 20141002
  Serious: No
  Sender: FDA-Public Use
  Company Number: US-TEVA-470288USA

PATIENT
  Sex: Female
  Weight: 59.02 kg

DRUGS (1)
  1. PLAN B ONE-STEP [Suspect]
     Indication: POST COITAL CONTRACEPTION
     Dosage: 1.5 MILLIGRAM DAILY;
     Route: 048
     Dates: start: 20140223, end: 20140223

REACTIONS (8)
  - Decreased appetite [Not Recovered/Not Resolved]
  - Mood swings [Recovered/Resolved]
  - Nervousness [Recovered/Resolved]
  - Uterine leiomyoma [Not Recovered/Not Resolved]
  - Headache [Unknown]
  - Abdominal pain lower [Recovered/Resolved]
  - Fatigue [Not Recovered/Not Resolved]
  - Menstruation irregular [Not Recovered/Not Resolved]
